FAERS Safety Report 7002424-5 (Version None)
Quarter: 2010Q3

REPORT INFORMATION
  Report Type: 
  Country: None (occurrence: None)
  Receive Date: 20100920
  Receipt Date: 20070619
  Transmission Date: 20110219
  Serious: No
  Sender: FDA-Public Use
  Company Number: US-ASTRAZENECA-2006UW08376

PATIENT
  Age: 18623 Day
  Sex: Female
  Weight: 90.7 kg

DRUGS (17)
  1. SEROQUEL [Suspect]
     Indication: SLEEP DISORDER
     Route: 048
     Dates: start: 20010531
  2. SEROQUEL [Suspect]
     Route: 048
  3. SEROQUEL [Suspect]
     Dosage: 25 MG TO 150 MG
     Route: 048
  4. NORVASC [Concomitant]
     Route: 048
     Dates: start: 20010131
  5. HYZAAR [Concomitant]
     Dosage: LOSARTAN- 100 MG, HCTZ- 25 MG
     Route: 048
     Dates: start: 20010925
  6. ZOCOR [Concomitant]
     Route: 048
     Dates: start: 20010131
  7. PLAVIX [Concomitant]
     Route: 048
     Dates: start: 20010331
  8. TRAZODONE HCL [Concomitant]
     Route: 048
     Dates: start: 20010925
  9. CLONAZEPAM [Concomitant]
     Dosage: TWO AND HALF TABLET A DAY
     Route: 048
     Dates: start: 20010724
  10. PROZAC [Concomitant]
     Dosage: 30 MG- 40 MG DAILY
     Route: 048
     Dates: start: 20010531
  11. VALIUM [Concomitant]
     Route: 048
     Dates: start: 20010925
  12. AMBIEN [Concomitant]
     Route: 048
     Dates: start: 20010531
  13. METHYLCARBAMOL [Concomitant]
     Dosage: 1500 MG-2250 MG DAILY
     Route: 048
     Dates: start: 20010922
  14. PREMARIN [Concomitant]
     Route: 048
     Dates: start: 20010131
  15. CELEBREX [Concomitant]
     Route: 048
     Dates: start: 20010131
  16. ZOLOFT [Concomitant]
     Route: 048
     Dates: start: 20010131
  17. SYNTHROID [Concomitant]
     Route: 048
     Dates: start: 20010131

REACTIONS (3)
  - DIABETES MELLITUS [None]
  - OVERWEIGHT [None]
  - TYPE 1 DIABETES MELLITUS [None]
